FAERS Safety Report 5350387-0 (Version None)
Quarter: 2007Q2

REPORT INFORMATION
  Report Type: 
  Country: None (occurrence: None)
  Receive Date: 20070606
  Receipt Date: 20070606
  Transmission Date: 20071010
  Serious: Yes (Other)
  Sender: FDA-Public Use
  Company Number: None

PATIENT
  Age: 60 Year
  Sex: Male
  Weight: 72.5755 kg

DRUGS (2)
  1. PHENYTOIN [Suspect]
     Indication: CONVULSION
     Dosage: 100MG BID
     Dates: start: 20020101
  2. CARBAMAZEPINE [Suspect]
     Dosage: 200MG BID
     Dates: start: 20020101

REACTIONS (2)
  - DIZZINESS [None]
  - DRUG INTOLERANCE [None]
